FAERS Safety Report 9671423 (Version 2)
Quarter: 2013Q4

REPORT INFORMATION
  Report Type: Report from Study
  Country: BR (occurrence: BR)
  Receive Date: 20131106
  Receipt Date: 20131127
  Transmission Date: 20140711
  Serious: Yes (Death, Hospitalization, Other)
  Sender: FDA-Public Use
  Company Number: BR-ABBVIE-13P-020-1165774-00

PATIENT
  Sex: Male

DRUGS (2)
  1. HUMIRA [Suspect]
     Indication: RHEUMATOID ARTHRITIS
     Dates: start: 2007
  2. UNKNOWN MEDICATIONS [Concomitant]

REACTIONS (5)
  - Pleural effusion [Fatal]
  - Dyspnoea [Fatal]
  - Renal failure [Unknown]
  - Pulmonary oedema [Unknown]
  - Pneumonia [Unknown]
